FAERS Safety Report 9370779 (Version 1)
Quarter: 2013Q2

REPORT INFORMATION
  Report Type: Spontaneous
  Country: PL (occurrence: PL)
  Receive Date: 20130626
  Receipt Date: 20130626
  Transmission Date: 20140414
  Serious: Yes (Other)
  Sender: FDA-Public Use
  Company Number: PL-WATSON-2013-11623

PATIENT
  Age: 15 Year
  Sex: Male

DRUGS (1)
  1. SERTRALINE HYDROCHLORIDE (UNKNOWN) [Suspect]
     Indication: OBSESSIVE-COMPULSIVE DISORDER
     Dosage: 25 MG, UNKNOWN
     Route: 048
     Dates: start: 20130608, end: 20130608

REACTIONS (7)
  - Anxiety [Unknown]
  - Malaise [Unknown]
  - Confusional state [Unknown]
  - Blood pressure increased [Recovered/Resolved]
  - Depressed mood [Unknown]
  - Insomnia [Unknown]
  - Crying [Unknown]
